FAERS Safety Report 5370436-3 (Version None)
Quarter: 2007Q2

REPORT INFORMATION
  Report Type: 
  Country: None (occurrence: None)
  Receive Date: 20070626
  Receipt Date: 20070423
  Transmission Date: 20071010
  Serious: No
  Sender: FDA-Public Use
  Company Number: US-AMGEN-US221105

PATIENT
  Sex: Male

DRUGS (3)
  1. ARANESP [Suspect]
     Indication: ANAEMIA OF MALIGNANT DISEASE
     Dates: start: 20070101
  2. REVLIMID [Concomitant]
  3. ZOMETA [Concomitant]

REACTIONS (1)
  - HAEMOGLOBIN DECREASED [None]
